FAERS Safety Report 18643371 (Version 1)
Quarter: 2020Q4

REPORT INFORMATION
  Report Type: Spontaneous
  Country: US (occurrence: US)
  Receive Date: 20201221
  Receipt Date: 20201221
  Transmission Date: 20210114
  Serious: Yes (Hospitalization)
  Sender: FDA-Public Use
  Company Number: None

PATIENT
  Age: 61 Year
  Sex: Female

DRUGS (18)
  1. VERAPAMIL 360MG [Concomitant]
  2. DULOXETINE 20MG [Concomitant]
     Active Substance: DULOXETINE
  3. PROGESTERONE 100MG [Concomitant]
     Active Substance: PROGESTERONE
  4. HYDROCORT  50MG [Concomitant]
  5. LEVALBUTEROL AER 45/ACT [Concomitant]
  6. PREGABALIN 75MG [Concomitant]
     Active Substance: PREGABALIN
  7. PREDNISONE. [Concomitant]
     Active Substance: PREDNISONE
  8. MELOXICAM 15MG [Concomitant]
     Active Substance: MELOXICAM
  9. TYLENOL [Concomitant]
     Active Substance: ACETAMINOPHEN
  10. ARNUITY ELPT INH [Concomitant]
  11. ESTRADIOL DIS 0.05MG [Concomitant]
  12. NARATRIPTAN 2.5MG [Concomitant]
     Active Substance: NARATRIPTAN HYDROCHLORIDE
  13. SOLIFENACIN 5MG [Concomitant]
  14. TRAMADOL HYDROCHLORIDE. [Concomitant]
     Active Substance: TRAMADOL HYDROCHLORIDE
  15. HUMIRA [Suspect]
     Active Substance: ADALIMUMAB
     Indication: ANKYLOSING SPONDYLITIS
     Dosage: ?          OTHER FREQUENCY:ONCE A WEEK;?
     Route: 058
     Dates: start: 20180428
  16. TRIAMCINOLON CRE 0.1% [Concomitant]
  17. FEXOFENADINE 180MG [Concomitant]
     Active Substance: FEXOFENADINE HYDROCHLORIDE
  18. TRELEGY AER ELLIP [Concomitant]

REACTIONS (1)
  - COVID-19 [None]
